FAERS Safety Report 6767884-3 (Version None)
Quarter: 2010Q2

REPORT INFORMATION
  Report Type: 
  Country: None (occurrence: None)
  Receive Date: 20100614
  Receipt Date: 20100609
  Transmission Date: 20101027
  Serious: Yes (Hospitalization)
  Sender: FDA-Public Use
  Company Number: US-RB-010535-10

PATIENT
  Age: 61 Year
  Sex: Female

DRUGS (2)
  1. SUBOXONE [Suspect]
     Route: 060
     Dates: start: 20100501, end: 20100604
  2. XANAX [Suspect]
     Indication: ANXIETY DISORDER
     Dosage: DOSING INFORMATION UNKNOWN.
     Route: 065

REACTIONS (6)
  - DISORIENTATION [None]
  - DIZZINESS [None]
  - FATIGUE [None]
  - GAIT DISTURBANCE [None]
  - MEMORY IMPAIRMENT [None]
  - SOMNOLENCE [None]
